FAERS Safety Report 24346352 (Version 2)
Quarter: 2024Q3

REPORT INFORMATION
  Report Type: Spontaneous
  Country: US (occurrence: US)
  Receive Date: 20240921
  Receipt Date: 20240921
  Transmission Date: 20241016
  Serious: Yes (Other)
  Sender: ROCHE
  Company Number: US-ROCHE-10000083537

PATIENT
  Sex: Female

DRUGS (2)
  1. XOLAIR PFS [Suspect]
     Active Substance: OMALIZUMAB
     Indication: Idiopathic urticaria
     Dosage: ONGOING
     Route: 058
     Dates: start: 202301
  2. XOLAIR PFS [Suspect]
     Active Substance: OMALIZUMAB
     Indication: Ankylosing spondylitis

REACTIONS (1)
  - Anaphylactic reaction [Unknown]
